FAERS Safety Report 5486032-3 (Version None)
Quarter: 2007Q4

REPORT INFORMATION
  Report Type: 
  Country: None (occurrence: None)
  Receive Date: 20071012
  Receipt Date: 20070927
  Transmission Date: 20080405
  Serious: Yes (Hospitalization, Other)
  Sender: FDA-Public Use
  Company Number: A-JP2007-15813

PATIENT
  Age: 79 Year
  Sex: Female
  Weight: 43 kg

DRUGS (13)
  1. TRACLEER [Suspect]
     Indication: PULMONARY HYPERTENSION
     Dosage: 62.5 MG, BID, ORAL; 62.5 MG, QD, ORAL; 62.5 MG, QD, ORAL
     Route: 048
     Dates: start: 20060519, end: 20060525
  2. TRACLEER [Suspect]
     Indication: PULMONARY HYPERTENSION
     Dosage: 62.5 MG, BID, ORAL; 62.5 MG, QD, ORAL; 62.5 MG, QD, ORAL
     Route: 048
     Dates: start: 20060526, end: 20060608
  3. TRACLEER [Suspect]
     Indication: PULMONARY HYPERTENSION
     Dosage: 62.5 MG, BID, ORAL; 62.5 MG, QD, ORAL; 62.5 MG, QD, ORAL
     Route: 048
     Dates: start: 20060609, end: 20060614
  4. LEVOTHYROXINE SODIUM [Concomitant]
  5. ALLOPURINOL [Concomitant]
  6. LISINOPRIL [Concomitant]
  7. CILOSTAZOL [Concomitant]
  8. LANSOPRAZOLE [Concomitant]
  9. MELIXOCAM (MELOXICAM) [Concomitant]
  10. CLOTIAZEPAM (CLOTIAZEPAM) [Concomitant]
  11. BROTIZOLAM (BROTIZOLAM) [Concomitant]
  12. DEXTROMETHORPHAN HYDROBROMIDE (DEXTROMETHORPHAN HYDROBROMIDE) [Concomitant]
  13. LACTOMIN (LACTOMIN) [Concomitant]

REACTIONS (4)
  - ANOREXIA [None]
  - CHOLANGITIS [None]
  - DRUG HYPERSENSITIVITY [None]
  - EOSINOPHIL COUNT INCREASED [None]
